FAERS Safety Report 21039299 (Version 1)
Quarter: 2022Q3

REPORT INFORMATION
  Report Type: Spontaneous
  Country: US (occurrence: US)
  Receive Date: 20220704
  Receipt Date: 20220704
  Transmission Date: 20221027
  Serious: Yes (Disabling, Other)
  Sender: FDA-Public Use
  Company Number: US-NOVOPROD-932865

PATIENT
  Sex: Male
  Weight: 102.05 kg

DRUGS (1)
  1. NOVOLIN 70/30 [Suspect]
     Active Substance: INSULIN HUMAN
     Indication: Product used for unknown indication
     Dosage: UNK
     Route: 058

REACTIONS (3)
  - Nerve injury [Not Recovered/Not Resolved]
  - Joint injury [Not Recovered/Not Resolved]
  - Intervertebral disc compression [Not Recovered/Not Resolved]
